FAERS Safety Report 19423316 (Version 4)
Quarter: 2021Q3

REPORT INFORMATION
  Report Type: Report from Study
  Country: US (occurrence: US)
  Receive Date: 20210616
  Receipt Date: 20210928
  Transmission Date: 20211014
  Serious: Yes (Death)
  Sender: FDA-Public Use
  Company Number: NVSC2021US131874

PATIENT
  Age: 44 Year
  Sex: Male

DRUGS (1)
  1. ENTRESTO [Suspect]
     Active Substance: SACUBITRIL\VALSARTAN
     Indication: CARDIAC FAILURE
     Dosage: 1.5 DF, BID
     Route: 048
     Dates: start: 20210605

REACTIONS (5)
  - Death [Fatal]
  - Incorrect dose administered [Unknown]
  - Cough [Unknown]
  - Wrong technique in product usage process [Unknown]
  - Sinusitis [Unknown]

NARRATIVE: CASE EVENT DATE: 20210605
